FAERS Safety Report 10446895 (Version 1)
Quarter: 2014Q3

REPORT INFORMATION
  Report Type: Spontaneous
  Country: IN (occurrence: IN)
  Receive Date: 20140911
  Receipt Date: 20140911
  Transmission Date: 20150326
  Serious: Yes (Hospitalization)
  Sender: FDA-Public Use
  Company Number: IN-SUN PHARMACEUTICAL INDUSTRIES LTD-2014SUN02003

PATIENT
  Age: 46 Year
  Sex: Female
  Weight: 54 kg

DRUGS (4)
  1. MIRTAZAPINE 7.5 MG TABLET [Suspect]
     Active Substance: MIRTAZAPINE
     Indication: SLEEP DISORDER
     Dosage: 22.5 MG/DAY, UNK
     Route: 065
  2. MIRTAZAPINE 7.5 MG TABLET [Suspect]
     Active Substance: MIRTAZAPINE
     Dosage: 15 MG/DAY, UNK
     Route: 065
  3. CLONAZEPAM. [Concomitant]
     Active Substance: CLONAZEPAM
     Indication: SLEEP DISORDER
     Dosage: 0.5 MG/DAY, UNK
     Route: 065
  4. MIRTAZAPINE 7.5 MG TABLET [Suspect]
     Active Substance: MIRTAZAPINE
     Dosage: 7.5 MG/DAY, UNK
     Route: 065

REACTIONS (2)
  - Delirium [Recovering/Resolving]
  - Hyponatraemia [Recovering/Resolving]
